FAERS Safety Report 6326802-2 (Version None)
Quarter: 2009Q3

REPORT INFORMATION
  Report Type: 
  Country: None (occurrence: None)
  Receive Date: 20090821
  Receipt Date: 20090808
  Transmission Date: 20100115
  Serious: Yes (Hospitalization)
  Sender: FDA-Public Use
  Company Number: 8042343

PATIENT
  Age: 59 Year
  Sex: Female
  Weight: 71.7 kg

DRUGS (12)
  1. CDP870 [Suspect]
     Indication: RHEUMATOID ARTHRITIS
     Dosage: 200 MG 1/2W SC
     Route: 058
     Dates: start: 20050804, end: 20060719
  2. CDP870 [Suspect]
     Indication: RHEUMATOID ARTHRITIS
     Dosage: 400 MG 1/2W SC
     Route: 058
     Dates: start: 20060801, end: 20071206
  3. CDP870 [Suspect]
     Indication: RHEUMATOID ARTHRITIS
     Dosage: 200 MG 1/2W SC
     Route: 058
     Dates: start: 20071218, end: 20090113
  4. CDP870 [Suspect]
     Indication: RHEUMATOID ARTHRITIS
     Dosage: 200 G 1/2W SC
     Route: 058
     Dates: start: 20090212
  5. METHOTREXATE [Concomitant]
  6. IBUPROFEN [Concomitant]
  7. IMOVANE [Concomitant]
  8. NORVASC [Concomitant]
  9. LUSOPRESS [Concomitant]
  10. METFORMIN HCL [Concomitant]
  11. KENALOG [Concomitant]
  12. DEPO-MEDROL [Concomitant]

REACTIONS (18)
  - ALANINE AMINOTRANSFERASE INCREASED [None]
  - ASPARTATE AMINOTRANSFERASE INCREASED [None]
  - BACK PAIN [None]
  - ERYTHEMA [None]
  - ESCHERICHIA INFECTION [None]
  - ESSENTIAL HYPERTENSION [None]
  - HEPATIC CYST [None]
  - JOINT SWELLING [None]
  - MALAISE [None]
  - MICROBIOLOGY TEST ABNORMAL [None]
  - NAUSEA [None]
  - NEUTROPHIL COUNT DECREASED [None]
  - PROTEIN URINE PRESENT [None]
  - PYELONEPHRITIS ACUTE [None]
  - RADICULOPATHY [None]
  - TYPE 2 DIABETES MELLITUS [None]
  - WHITE BLOOD CELL COUNT INCREASED [None]
  - WHITE BLOOD CELLS URINE POSITIVE [None]
